FAERS Safety Report 24873927 (Version 2)
Quarter: 2025Q2

REPORT INFORMATION
  Report Type: Report from Study
  Country: US (occurrence: US)
  Receive Date: 20250122
  Receipt Date: 20250620
  Transmission Date: 20250717
  Serious: Yes (Other)
  Sender: JOHNSON AND JOHNSON
  Company Number: US-JNJFOC-20250146620

PATIENT
  Sex: Male

DRUGS (2)
  1. REMICADE [Suspect]
     Active Substance: INFLIXIMAB
     Indication: Rheumatoid arthritis
     Dosage: 6 VIALS
     Route: 041
  2. REMICADE [Suspect]
     Active Substance: INFLIXIMAB
     Indication: Osteoarthritis

REACTIONS (2)
  - Skin cancer [Recovering/Resolving]
  - Off label use [Unknown]
